FAERS Safety Report 8273663-0 (Version None)
Quarter: 2012Q2

REPORT INFORMATION
  Report Type: 
  Country: None (occurrence: None)
  Receive Date: 20120411
  Receipt Date: 20120223
  Transmission Date: 20120825
  Serious: No
  Sender: FDA-Public Use
  Company Number: US-TEVA-324515USA

PATIENT
  Sex: Female
  Weight: 58.566 kg

DRUGS (8)
  1. MILNACIPRAN [Concomitant]
     Dates: start: 20110101
  2. NUVIGIL [Suspect]
     Indication: FIBROMYALGIA
     Dosage: 150 MILLIGRAM;
     Route: 048
     Dates: start: 20110101, end: 20110101
  3. GABAPENTIN [Concomitant]
  4. FLUOXETINE [Concomitant]
  5. PREGABALIN [Concomitant]
  6. BUPROPION HCL [Concomitant]
  7. NUVIGIL [Suspect]
     Indication: DISTURBANCE IN ATTENTION
  8. NUVIGIL [Suspect]
     Indication: DEPRESSED LEVEL OF CONSCIOUSNESS

REACTIONS (3)
  - FATIGUE [None]
  - BLOOD PRESSURE INCREASED [None]
  - FEELING JITTERY [None]
